FAERS Safety Report 9124047 (Version 1)
Quarter: 2013Q1

REPORT INFORMATION
  Report Type: Spontaneous
  Country: US (occurrence: US)
  Receive Date: 20130227
  Receipt Date: 20130227
  Transmission Date: 20140127
  Serious: Yes (Other)
  Sender: FDA-Public Use
  Company Number: US-FRI-1000038038

PATIENT
  Age: 93 Year
  Sex: Female

DRUGS (6)
  1. BYSTOLIC [Suspect]
     Indication: CARDIOVASCULAR EVENT PROPHYLAXIS
     Dosage: 5 MG
     Route: 048
     Dates: start: 2009, end: 201208
  2. BYSTOLIC [Suspect]
     Dosage: 5 MG
     Route: 048
     Dates: start: 201208
  3. MVI [Concomitant]
  4. TYLENOL [Concomitant]
     Indication: PAIN
     Dosage: AS NEEDED
  5. ASPIRIN [Concomitant]
     Dosage: 81 MG
  6. PLAVIX [Concomitant]

REACTIONS (13)
  - Dementia [Not Recovered/Not Resolved]
  - Delirium [Not Recovered/Not Resolved]
  - Conversion disorder [Not Recovered/Not Resolved]
  - Fatigue [Not Recovered/Not Resolved]
  - Asthenia [Not Recovered/Not Resolved]
  - Local swelling [Not Recovered/Not Resolved]
  - Decreased appetite [Not Recovered/Not Resolved]
  - Irritability [Not Recovered/Not Resolved]
  - Vomiting [Not Recovered/Not Resolved]
  - Cough [Not Recovered/Not Resolved]
  - Diarrhoea [Recovering/Resolving]
  - Headache [Recovered/Resolved]
  - Chills [Recovered/Resolved]
